FAERS Safety Report 23114943 (Version 1)
Quarter: 2023Q4

REPORT INFORMATION
  Report Type: Spontaneous
  Country: US (occurrence: US)
  Receive Date: 20231027
  Receipt Date: 20231027
  Transmission Date: 20240110
  Serious: No
  Sender: FDA-Public Use
  Company Number: US-MYLANLABS-2023M1108847

PATIENT
  Sex: Female
  Weight: 48.08 kg

DRUGS (1)
  1. ESTRADIOL TRANSDERMAL SYSTEM [Suspect]
     Active Substance: ESTRADIOL
     Indication: Hormone therapy
     Dosage: 0.025 MILLIGRAM, QD (ONCE WEEKLY)
     Route: 062

REACTIONS (3)
  - Product adhesion issue [Unknown]
  - Tremor [Unknown]
  - Hyperhidrosis [Unknown]
